FAERS Safety Report 9805679 (Version 1)
Quarter: 2014Q1

REPORT INFORMATION
  Report Type: Spontaneous
  Country: US (occurrence: US)
  Receive Date: 20140109
  Receipt Date: 20140109
  Transmission Date: 20141002
  Serious: No
  Sender: FDA-Public Use
  Company Number: US-PFIZER INC-2014002820

PATIENT
  Sex: Female

DRUGS (4)
  1. LYRICA [Suspect]
     Dosage: UNK
  2. GABAPENTIN [Suspect]
     Dosage: UNK
  3. VITAMIN B-COMPLEX [Suspect]
     Dosage: UNK
  4. SAVELLA [Suspect]
     Dosage: UNK

REACTIONS (1)
  - Drug ineffective [Unknown]
